FAERS Safety Report 4895207-3 (Version None)
Quarter: 2006Q1

REPORT INFORMATION
  Report Type: 
  Country: None (occurrence: None)
  Receive Date: 20060125
  Receipt Date: 20060112
  Transmission Date: 20060701
  Serious: Yes (Other)
  Sender: FDA-Public Use
  Company Number: 2005169335

PATIENT
  Age: 77 Year
  Sex: Female

DRUGS (2)
  1. VFEND [Suspect]
     Indication: BRONCHOPULMONARY ASPERGILLOSIS
     Dosage: 3 MG/KG (DAILY), INTRAVENOUS
     Route: 042
     Dates: start: 20051208
  2. RIMATIL (BUCILLAMINE) [Suspect]
     Indication: MUSCULOSKELETAL PAIN
     Dosage: 200 MG (DAILY), ORAL
     Route: 048
     Dates: start: 20051104, end: 20051215

REACTIONS (2)
  - ACUTE RESPIRATORY DISTRESS SYNDROME [None]
  - INTERSTITIAL LUNG DISEASE [None]
